FAERS Safety Report 10425269 (Version 1)
Quarter: 2014Q3

REPORT INFORMATION
  Report Type: Spontaneous
  Country: JP (occurrence: JP)
  Receive Date: 20140902
  Receipt Date: 20140902
  Transmission Date: 20150326
  Serious: Yes (Other)
  Sender: FDA-Public Use
  Company Number: PHHY2013JP161856

PATIENT

DRUGS (4)
  1. ACLARUBICIN [Concomitant]
     Active Substance: ACLARUBICIN
     Dosage: UNK UKN, UNK
  2. EXJADE [Suspect]
     Active Substance: DEFERASIROX
     Dosage: UNK UKN, UNK
  3. G-CSF [Concomitant]
     Active Substance: FILGRASTIM
     Dosage: UNK UKN, UNK
  4. CYTARABINE. [Concomitant]
     Active Substance: CYTARABINE
     Dosage: UNK UKN, UNK

REACTIONS (2)
  - Renal impairment [Unknown]
  - Disease progression [Unknown]
